FAERS Safety Report 6704727-8 (Version None)
Quarter: 2010Q2

REPORT INFORMATION
  Report Type: 
  Country: None (occurrence: None)
  Receive Date: 20100430
  Receipt Date: 20100422
  Transmission Date: 20101027
  Serious: Yes (Hospitalization, Other)
  Sender: FDA-Public Use
  Company Number: DE-ABBOTT-10P-062-0630306-00

PATIENT
  Sex: Female

DRUGS (6)
  1. HUMIRA [Suspect]
     Indication: RHEUMATOID ARTHRITIS
     Dosage: 40MG
     Dates: end: 20100131
  2. METHOTREXATE [Concomitant]
     Indication: DRUG USE FOR UNKNOWN INDICATION
  3. EMBOLEX [Concomitant]
     Indication: DRUG USE FOR UNKNOWN INDICATION
     Dosage: OPD
     Route: 058
  4. PANTOZOL [Concomitant]
     Indication: DRUG USE FOR UNKNOWN INDICATION
     Dosage: OPD. EVENING
  5. CAPTOHEXAL [Concomitant]
     Indication: DRUG USE FOR UNKNOWN INDICATION
     Dosage: OPD. MORNING
  6. FOLIC ACID [Concomitant]
     Indication: DRUG USE FOR UNKNOWN INDICATION
     Dosage: ONCE EVERY SATURDAY

REACTIONS (2)
  - ANAEMIA POSTOPERATIVE [None]
  - OSTEOARTHRITIS [None]
